FAERS Safety Report 4781366-X (Version None)
Quarter: 2005Q3

REPORT INFORMATION
  Report Type: 
  Country: None (occurrence: None)
  Receive Date: 20050928
  Receipt Date: 20050922
  Transmission Date: 20060218
  Serious: Yes (Other)
  Sender: FDA-Public Use
  Company Number: PHFR2005GB03157

PATIENT
  Age: 40 Year
  Sex: Female

DRUGS (1)
  1. ZOLEDRONATE [Suspect]
     Indication: FIBROUS DYSPLASIA OF BONE
     Dosage: UNK
     Route: 042

REACTIONS (9)
  - ARTHROPATHY [None]
  - EAR PAIN [None]
  - EATING DISORDER [None]
  - JAW DISORDER [None]
  - NUCLEAR MAGNETIC RESONANCE IMAGING ABNORMAL [None]
  - OSTEONECROSIS [None]
  - PAIN IN JAW [None]
  - SALIVARY GLAND PAIN [None]
  - SWELLING [None]
